FAERS Safety Report 5371609-6 (Version None)
Quarter: 2007Q2

REPORT INFORMATION
  Report Type: 
  Country: None (occurrence: None)
  Receive Date: 20070615
  Receipt Date: 20070112
  Transmission Date: 20071010
  Serious: Yes (Other)
  Sender: FDA-Public Use
  Company Number: 200612303US

PATIENT
  Age: 51 Year
  Sex: Female
  Weight: 102.3 kg

DRUGS (13)
  1. LANTUS [Suspect]
     Indication: DIABETES MELLITUS NON-INSULIN-DEPENDENT
     Dosage: 22 IU SC
     Route: 058
     Dates: start: 20051201
  2. LANTUS [Suspect]
     Indication: DIABETES MELLITUS NON-INSULIN-DEPENDENT
     Dosage: 30 U QD
  3. OPTICLIK [Suspect]
  4. INSULIN GLARGINE (APIDRA) [Suspect]
     Dosage: 18 IU SC
     Route: 058
     Dates: start: 20060201
  5. OPTICLIK GREY [Suspect]
  6. METFORMIN HYDROCHLORIDE [Concomitant]
  7. SYNTHROID [Concomitant]
  8. PREVACID [Concomitant]
  9. ZIPRASIDONE HYDROCHLORIDE (GEODON/01487002/) [Concomitant]
  10. LAMICTAL [Concomitant]
  11. VALSARTAN (DIOVANE) [Concomitant]
  12. PROPRANOLOL (INERAL) [Concomitant]
  13. ZYPREXA [Concomitant]

REACTIONS (2)
  - BLOOD GLUCOSE INCREASED [None]
  - HYPERGLYCAEMIA [None]
